FAERS Safety Report 23217944 (Version 4)
Quarter: 2024Q2

REPORT INFORMATION
  Report Type: Spontaneous
  Country: JP (occurrence: None)
  Receive Date: 20231122
  Receipt Date: 20240402
  Transmission Date: 20240715
  Serious: Yes (Life-Threatening, Hospitalization, Disabling, Other)
  Sender: FDA-Public Use
  Company Number: 2023A260935

PATIENT
  Age: 67 Year
  Sex: Female
  Weight: 50 kg

DRUGS (9)
  1. TAGRISSO [Suspect]
     Active Substance: OSIMERTINIB
     Indication: Non-small cell lung cancer
     Route: 048
     Dates: start: 20180419, end: 20231128
  2. MINOCYCLINE HYDROCHLORIDE [Suspect]
     Active Substance: MINOCYCLINE HYDROCHLORIDE
     Indication: Pulmonary embolism
     Route: 048
  3. LIPITOR [Suspect]
     Active Substance: ATORVASTATIN CALCIUM
     Indication: Hyperlipidaemia
     Route: 048
  4. VONOPRAZAN FUMARATE [Suspect]
     Active Substance: VONOPRAZAN FUMARATE
     Route: 048
  5. ELIQUIS [Suspect]
     Active Substance: APIXABAN
     Indication: Pulmonary embolism
     Route: 048
     Dates: start: 20210811, end: 20231117
  6. ALLELOCK [Concomitant]
     Active Substance: OLOPATADINE HYDROCHLORIDE
     Indication: Pulmonary embolism
     Route: 048
     Dates: start: 20210322
  7. MIYA-BM [Concomitant]
     Active Substance: CLOSTRIDIUM BUTYRICUM SPORES STRAIN M-55
     Route: 048
     Dates: start: 20220725
  8. AMBROXOL HYDROCHLORIDE [Concomitant]
     Active Substance: AMBROXOL HYDROCHLORIDE
     Indication: Pulmonary embolism
     Route: 048
     Dates: end: 20230925
  9. FEXOFENADINE HYDROCHLORIDE [Concomitant]
     Active Substance: FEXOFENADINE HYDROCHLORIDE
     Indication: Pulmonary embolism
     Route: 048

REACTIONS (18)
  - Pancreatitis acute [Not Recovered/Not Resolved]
  - Hypocalcaemia [Recovering/Resolving]
  - Hypokalaemia [Unknown]
  - Drug-induced liver injury [Not Recovered/Not Resolved]
  - Anaemia [Unknown]
  - Disseminated intravascular coagulation [Unknown]
  - Pleural effusion [Recovering/Resolving]
  - Platelet count decreased [Recovering/Resolving]
  - Depressed level of consciousness [Unknown]
  - Renal impairment [Unknown]
  - Prothrombin time prolonged [Unknown]
  - Blood creatine phosphokinase increased [Recovering/Resolving]
  - Electrocardiogram T wave inversion [Unknown]
  - Colitis microscopic [Recovering/Resolving]
  - Hypoalbuminaemia [Unknown]
  - Bacteraemia [Unknown]
  - Cushing^s syndrome [Unknown]
  - COVID-19 [Unknown]

NARRATIVE: CASE EVENT DATE: 20230101
